FAERS Safety Report 17760330 (Version 1)
Quarter: 2020Q2

REPORT INFORMATION
  Report Type: Spontaneous
  Country: US (occurrence: US)
  Receive Date: 20200507
  Receipt Date: 20200507
  Transmission Date: 20200714
  Serious: No
  Sender: FDA-Public Use
  Company Number: None

PATIENT
  Sex: Female

DRUGS (15)
  1. OCALIVA [Suspect]
     Active Substance: OBETICHOLIC ACID
     Indication: PRIMARY BILIARY CHOLANGITIS
     Route: 048
     Dates: start: 20200415
  2. BUPROPION. [Concomitant]
     Active Substance: BUPROPION
  3. OMEPRAZOLE. [Concomitant]
     Active Substance: OMEPRAZOLE
  4. WARFARIN [Concomitant]
     Active Substance: WARFARIN
  5. AMOXICILLIN. [Concomitant]
     Active Substance: AMOXICILLIN
  6. POT CHLORIDE [Concomitant]
     Active Substance: POTASSIUM CHLORIDE
  7. APAP/CODEINE [Concomitant]
     Active Substance: ACETAMINOPHEN\CODEINE PHOSPHATE
  8. ENOXAPARIN [Concomitant]
     Active Substance: ENOXAPARIN
  9. MONUROL [Concomitant]
     Active Substance: FOSFOMYCIN TROMETHAMINE
  10. NITROFURANTIN [Concomitant]
     Active Substance: NITROFURANTOIN
  11. URSODIOL. [Concomitant]
     Active Substance: URSODIOL
  12. VERAPAMIL [Concomitant]
     Active Substance: VERAPAMIL HYDROCHLORIDE
  13. ALPRAZOLAM. [Concomitant]
     Active Substance: ALPRAZOLAM
  14. FUROSEMIDE. [Concomitant]
     Active Substance: FUROSEMIDE
  15. METOPROL SUC [Concomitant]

REACTIONS (3)
  - Oropharyngeal pain [None]
  - Constipation [None]
  - Headache [None]
